FAERS Safety Report 6076014-5 (Version None)
Quarter: 2009Q1

REPORT INFORMATION
  Report Type: 
  Country: None (occurrence: None)
  Receive Date: 20090212
  Receipt Date: 20090202
  Transmission Date: 20090719
  Serious: Yes (Other)
  Sender: FDA-Public Use
  Company Number: BR-PFIZER INC-2009165635

PATIENT

DRUGS (2)
  1. FIBRASE [Suspect]
     Indication: WOUND
     Dosage: UNK
     Route: 061
     Dates: start: 20081201
  2. ANTIBIOTICS [Concomitant]
     Dosage: UNK
     Dates: start: 20081201

REACTIONS (4)
  - ERYTHEMA [None]
  - FEELING HOT [None]
  - POST PROCEDURAL HAEMORRHAGE [None]
  - RASH [None]
